FAERS Safety Report 26111897 (Version 1)
Quarter: 2025Q4

REPORT INFORMATION
  Report Type: Spontaneous
  Country: RU (occurrence: RU)
  Receive Date: 20251202
  Receipt Date: 20251202
  Transmission Date: 20260117
  Serious: Yes (Other)
  Sender: BAYER HEALTHCARE PHARMACEUTICALS INC.
  Company Number: None

PATIENT
  Sex: Male
  Weight: 75 kg

DRUGS (1)
  1. ULTRAVIST [Suspect]
     Active Substance: IOPROMIDE
     Indication: Investigation
     Dosage: 100 ML, ONCE
     Route: 042
     Dates: start: 20251124, end: 20251124

REACTIONS (2)
  - Asphyxia [Recovered/Resolved]
  - Erythema [Recovered/Resolved]
